FAERS Safety Report 8540758-3 (Version None)
Quarter: 2012Q3

REPORT INFORMATION
  Report Type: 
  Country: None (occurrence: None)
  Receive Date: 20120726
  Receipt Date: 20120620
  Transmission Date: 20120928
  Serious: No
  Sender: FDA-Public Use
  Company Number: US-MYLANLABS-2012S1012730

PATIENT
  Age: 49 Year
  Sex: Female
  Weight: 78.47 kg

DRUGS (11)
  1. LESCOL [Concomitant]
     Indication: BLOOD CHOLESTEROL INCREASED
  2. DIOVAN [Concomitant]
     Indication: BLOOD PRESSURE INCREASED
     Route: 048
  3. SYNTHROID [Concomitant]
     Indication: HYPOTHYROIDISM
     Route: 048
  4. FUROSEMIDE [Concomitant]
     Route: 048
  5. POTASSIUM CHLORIDE [Concomitant]
  6. METFORMIN HYDROCHLORIDE [Concomitant]
     Indication: DIABETES MELLITUS
     Route: 048
  7. JANUVIA [Concomitant]
     Indication: DIABETES MELLITUS
     Route: 048
  8. SAVELLA [Concomitant]
     Indication: FIBROMYALGIA
     Route: 048
  9. TRIAMCINOLONE [Concomitant]
     Indication: MULTIPLE ALLERGIES
     Route: 045
  10. CLONIDINE [Suspect]
     Indication: BLOOD PRESSURE INCREASED
     Dosage: CHANGE WEEKLY
     Route: 062
  11. CLONIDINE [Suspect]

REACTIONS (2)
  - DRUG EFFECT DECREASED [None]
  - BLOOD PRESSURE INCREASED [None]
